FAERS Safety Report 9519211 (Version 2)
Quarter: 2014Q1

REPORT INFORMATION
  Report Type: Spontaneous
  Country: US (occurrence: None)
  Receive Date: 20130305
  Receipt Date: 20140306
  Transmission Date: 20141002
  Serious: Yes (Disabling)
  Sender: FDA-Public Use
  Company Number: 163-21880-12111212

PATIENT
  Age: 56 Year
  Sex: Male
  Weight: 97.98 kg

DRUGS (15)
  1. REVLIMID [Suspect]
     Indication: PLASMA CELL MYELOMA
     Dosage: 25 MG, 21 IN 21 D, PO
     Route: 048
     Dates: start: 20121017
  2. ASPIRIN (ACETYLSALICYLIC ACID) [Concomitant]
  3. MULTIVITAMINS (MULTIVITAMINS) [Concomitant]
  4. PROCHLORPERAZINE (PROCHLORPERAZINE) [Concomitant]
  5. TYLENOL (PARACETAMOL) [Concomitant]
  6. ULTRAM ER (TRAMADOL HYDROCHLORIDE) [Concomitant]
  7. VALTREX (VALACICLOVIR HYDROCHLORIDE) [Concomitant]
  8. ZOMETA (ZOLEDRONIC ACID) [Concomitant]
  9. CARFILZOMIB (CARFILZOMIB) [Concomitant]
  10. ATIVAN (LORAZEPAM) [Concomitant]
  11. DEXAMETHASONE (DEXAMETHASONE) [Concomitant]
  12. AMBIEN (ZOLPIDEM TARTRATE) [Concomitant]
  13. SENOKOT S (COLOXYL WITH SENNA) [Concomitant]
  14. COLACE (DOCUSATE SODIUM) [Concomitant]
  15. KYPROLIS (CARFILZOMIB) [Concomitant]

REACTIONS (3)
  - Rash generalised [None]
  - Gastric disorder [None]
  - Fatigue [None]
